FAERS Safety Report 15943055 (Version 2)
Quarter: 2019Q1

REPORT INFORMATION
  Report Type: Spontaneous
  Country: JP (occurrence: JP)
  Receive Date: 20190210
  Receipt Date: 20190210
  Transmission Date: 20190417
  Serious: Yes (Other)
  Sender: FDA-Public Use
  Company Number: PHHY2019JP029868

PATIENT
  Age: 63 Year
  Sex: Male

DRUGS (1)
  1. PREDNISOLONE. [Suspect]
     Active Substance: PREDNISOLONE
     Indication: HENOCH-SCHONLEIN PURPURA NEPHRITIS
     Dosage: 0.6 MG/KG, UNK
     Route: 048

REACTIONS (2)
  - Mesothelioma malignant [Unknown]
  - Steroid diabetes [Unknown]
